FAERS Safety Report 8701508 (Version 3)
Quarter: 2013Q2

REPORT INFORMATION
  Report Type: Spontaneous
  Country: US (occurrence: US)
  Receive Date: 20120802
  Receipt Date: 20130619
  Transmission Date: 20140414
  Serious: No
  Sender: FDA-Public Use
  Company Number: US-009507513-1207USA009615

PATIENT
  Sex: Female

DRUGS (2)
  1. JANUMET XR [Suspect]
     Dosage: UNK
     Route: 048
     Dates: end: 20120730
  2. JANUMET XR [Suspect]
     Dosage: UNK
     Route: 048
     Dates: start: 20120601

REACTIONS (3)
  - Product packaging issue [Unknown]
  - Incorrect dose administered [Unknown]
  - No adverse event [Unknown]
